FAERS Safety Report 13596078 (Version 1)
Quarter: 2017Q2

REPORT INFORMATION
  Report Type: Spontaneous
  Country: US (occurrence: US)
  Receive Date: 20170531
  Receipt Date: 20170531
  Transmission Date: 20170830
  Serious: No
  Sender: FDA-Public Use
  Company Number: US-JNJFOC-20170309401

PATIENT
  Age: 76 Year
  Sex: Female
  Weight: 49.9 kg

DRUGS (1)
  1. TYLENOL REGULAR STRENGTH [Suspect]
     Active Substance: ACETAMINOPHEN
     Indication: BACK PAIN
     Dosage: TAKING FOR ABOUT THE PAST WEEK
     Route: 048

REACTIONS (3)
  - Incorrect dose administered [Recovering/Resolving]
  - Vision blurred [Recovering/Resolving]
  - Inappropriate schedule of drug administration [Recovering/Resolving]
